FAERS Safety Report 5294374-X (Version None)
Quarter: 2007Q2

REPORT INFORMATION
  Report Type: 
  Country: None (occurrence: None)
  Receive Date: 20070410
  Receipt Date: 20070410
  Transmission Date: 20071010
  Serious: Yes (Hospitalization, Other)
  Sender: FDA-Public Use
  Company Number: None

PATIENT
  Age: 58 Year
  Weight: 83.9154 kg

DRUGS (2)
  1. PERMAX [Suspect]
     Indication: DYSKINESIA
     Dosage: 1 TABLET DAILY
     Dates: start: 19990101, end: 20070408
  2. PERMAX [Suspect]
     Indication: MOVEMENT DISORDER
     Dosage: 1 TABLET DAILY
     Dates: start: 19990101, end: 20070408

REACTIONS (2)
  - AORTIC VALVE DISEASE [None]
  - SOMNOLENCE [None]
